FAERS Safety Report 25317924 (Version 1)
Quarter: 2025Q2

REPORT INFORMATION
  Report Type: Spontaneous
  Country: IT (occurrence: IT)
  Receive Date: 20250515
  Receipt Date: 20250515
  Transmission Date: 20250716
  Serious: Yes (Other)
  Sender: MYLAN
  Company Number: IT-MYLANLABS-2025M1040315

PATIENT
  Age: 76 Year
  Sex: Male

DRUGS (16)
  1. SORAFENIB [Suspect]
     Active Substance: SORAFENIB
     Indication: Hepatocellular carcinoma
     Dosage: 400 MILLIGRAM, BID
  2. SORAFENIB [Suspect]
     Active Substance: SORAFENIB
     Dosage: 400 MILLIGRAM, BID
     Route: 048
  3. SORAFENIB [Suspect]
     Active Substance: SORAFENIB
     Dosage: 400 MILLIGRAM, BID
     Route: 048
  4. SORAFENIB [Suspect]
     Active Substance: SORAFENIB
     Dosage: 400 MILLIGRAM, BID
  5. CAPECITABINE [Suspect]
     Active Substance: CAPECITABINE
     Indication: Hepatocellular carcinoma
  6. CAPECITABINE [Suspect]
     Active Substance: CAPECITABINE
     Route: 065
  7. CAPECITABINE [Suspect]
     Active Substance: CAPECITABINE
     Route: 065
  8. CAPECITABINE [Suspect]
     Active Substance: CAPECITABINE
  9. CYCLOPHOSPHAMIDE [Suspect]
     Active Substance: CYCLOPHOSPHAMIDE
     Indication: Hepatocellular carcinoma
  10. CYCLOPHOSPHAMIDE [Suspect]
     Active Substance: CYCLOPHOSPHAMIDE
     Route: 065
  11. CYCLOPHOSPHAMIDE [Suspect]
     Active Substance: CYCLOPHOSPHAMIDE
     Route: 065
  12. CYCLOPHOSPHAMIDE [Suspect]
     Active Substance: CYCLOPHOSPHAMIDE
  13. THALIDOMIDE [Suspect]
     Active Substance: THALIDOMIDE
     Indication: Hepatocellular carcinoma
     Dosage: 200 MILLIGRAM, QD
     Dates: start: 200505
  14. THALIDOMIDE [Suspect]
     Active Substance: THALIDOMIDE
     Dosage: 200 MILLIGRAM, QD
     Route: 048
     Dates: start: 200505
  15. THALIDOMIDE [Suspect]
     Active Substance: THALIDOMIDE
     Dosage: 200 MILLIGRAM, QD
     Route: 048
     Dates: start: 200505
  16. THALIDOMIDE [Suspect]
     Active Substance: THALIDOMIDE
     Dosage: 200 MILLIGRAM, QD
     Dates: start: 200505

REACTIONS (4)
  - Drug ineffective for unapproved indication [Unknown]
  - Asthenia [Unknown]
  - Diarrhoea [Unknown]
  - Off label use [Unknown]
